FAERS Safety Report 19107283 (Version 1)
Quarter: 2021Q2

REPORT INFORMATION
  Report Type: Spontaneous
  Country: US (occurrence: US)
  Receive Date: 20210408
  Receipt Date: 20210408
  Transmission Date: 20210717
  Serious: Yes (Life-Threatening)
  Sender: FDA-Public Use
  Company Number: None

PATIENT
  Age: 73 Year
  Sex: Male

DRUGS (1)
  1. CEFTRIAXONE (CEFTRIAXONE NA 1GM/VIL INJ) [Suspect]
     Active Substance: CEFTRIAXONE SODIUM
     Indication: INFECTION
     Dosage: ?          OTHER ROUTE:IV?
     Dates: start: 20210319, end: 20210319

REACTIONS (3)
  - Hypotension [None]
  - Atrial fibrillation [None]
  - Anaphylactic reaction [None]

NARRATIVE: CASE EVENT DATE: 20210319
